FAERS Safety Report 11453592 (Version 2)
Quarter: 2015Q4

REPORT INFORMATION
  Report Type: Report from Study
  Country: KH (occurrence: KH)
  Receive Date: 20150903
  Receipt Date: 20151015
  Transmission Date: 20160304
  Serious: Yes (Other)
  Sender: FDA-Public Use
  Company Number: PHHY2015KH102998

PATIENT
  Age: 37 Year
  Sex: Female
  Weight: 48 kg

DRUGS (5)
  1. PARACETAMOL [Concomitant]
     Active Substance: ACETAMINOPHEN
     Indication: MALAISE
     Dosage: 1.5 DF, TID
     Route: 048
     Dates: start: 20101208
  2. GLIVEC [Suspect]
     Active Substance: IMATINIB MESYLATE
     Indication: CHRONIC MYELOID LEUKAEMIA
     Dosage: 400 MG, QD (100 MG X 4 CAP)
     Route: 048
     Dates: start: 20100819, end: 20150215
  3. PARACETAMOL [Concomitant]
     Active Substance: ACETAMINOPHEN
     Indication: PYREXIA
  4. GLIVEC [Suspect]
     Active Substance: IMATINIB MESYLATE
     Dosage: 300 MG, QD  (100 MG X 3 CAP)
     Route: 048
     Dates: start: 20150216
  5. PARACETAMOL [Concomitant]
     Active Substance: ACETAMINOPHEN
     Indication: PAIN

REACTIONS (6)
  - Erythema nodosum [Recovering/Resolving]
  - Conjunctival haemorrhage [Unknown]
  - Anaemia [Unknown]
  - Increased tendency to bruise [Unknown]
  - Haemorrhage [Recovering/Resolving]
  - Leukopenia [Unknown]

NARRATIVE: CASE EVENT DATE: 201411
